FAERS Safety Report 9466969 (Version 1)
Quarter: 2013Q3

REPORT INFORMATION
  Report Type: Spontaneous
  Country: US (occurrence: US)
  Receive Date: 20130820
  Receipt Date: 20130820
  Transmission Date: 20140515
  Serious: Yes (Other)
  Sender: FDA-Public Use
  Company Number: US-009507513-1308USA007239

PATIENT
  Sex: Female

DRUGS (1)
  1. FOSAMAX [Suspect]
     Indication: DYSPNOEA
     Dosage: 1 DF, QW
     Dates: start: 2000

REACTIONS (2)
  - Dyspnoea [Recovering/Resolving]
  - Off label use [Unknown]
